FAERS Safety Report 8826311 (Version 1)
Quarter: 2012Q4

REPORT INFORMATION
  Report Type: 
  Country: US (occurrence: US)
  Receive Date: 20121008
  Receipt Date: 20121008
  Transmission Date: 20130627
  Serious: No
  Sender: FDA-Public Use
  Company Number: US-GLAXOSMITHKLINE-A0992576A

PATIENT
  Sex: Female

DRUGS (2)
  1. POTIGA [Suspect]
     Indication: CONVULSION
     Dosage: 200MG See dosage text
     Route: 048
  2. ANTIEPILEPTIC AGENT [Concomitant]

REACTIONS (1)
  - Irritability [Recovered/Resolved]
